FAERS Safety Report 4956079-1 (Version None)
Quarter: 2006Q1

REPORT INFORMATION
  Report Type: 
  Country: None (occurrence: None)
  Receive Date: 20060328
  Receipt Date: 20050303
  Transmission Date: 20060701
  Serious: Yes (Hospitalization, Disabling)
  Sender: FDA-Public Use
  Company Number: US-MERCK-0503USA00851

PATIENT
  Age: 51 Year
  Sex: Female
  Weight: 74 kg

DRUGS (21)
  1. VIOXX [Suspect]
     Indication: ARTHRITIS
     Route: 048
     Dates: start: 19991227, end: 20040930
  2. ZOCOR [Concomitant]
     Route: 065
  3. AVAPRO [Concomitant]
     Route: 065
  4. PREMARIN [Concomitant]
     Route: 065
  5. RANITIDINE [Concomitant]
     Route: 065
  6. ALPRAZOLAM [Concomitant]
     Route: 065
  7. INDAPAMIDE [Concomitant]
     Route: 065
  8. VIOXX [Suspect]
     Indication: OSTEOARTHRITIS
     Route: 048
     Dates: start: 19991227, end: 20040930
  9. NEXIUM [Concomitant]
     Route: 065
  10. METOCLOPRAMIDE [Concomitant]
     Route: 065
  11. TRICOR [Concomitant]
     Route: 065
  12. PREVACID [Concomitant]
     Route: 065
  13. NEURONTIN [Concomitant]
     Route: 065
  14. IBUPROFEN [Concomitant]
     Route: 065
  15. VICOPROFEN [Concomitant]
     Route: 065
  16. HYDROCODONE BITARTRATE [Concomitant]
     Route: 065
  17. PROPOXYPHENE HYDROCHLORIDE [Concomitant]
     Route: 065
  18. VITAMINS (UNSPECIFIED) [Concomitant]
     Route: 065
  19. MEDROXYPROGESTERONE ACETATE [Concomitant]
     Route: 065
  20. LEVAQUIN [Concomitant]
     Route: 065
  21. ALLEGRA [Concomitant]
     Route: 065

REACTIONS (21)
  - ABDOMINAL PAIN UPPER [None]
  - ADVERSE EVENT [None]
  - ARTHROPATHY [None]
  - CARDIAC DISORDER [None]
  - CARDIAC MURMUR [None]
  - CARDIAC VALVE DISEASE [None]
  - CHEST PAIN [None]
  - CORONARY ARTERY DISEASE [None]
  - DEPRESSION [None]
  - DIARRHOEA [None]
  - DYSARTHRIA [None]
  - GASTRITIS [None]
  - GASTROOESOPHAGEAL REFLUX DISEASE [None]
  - HAEMORRHAGE [None]
  - HEART RATE IRREGULAR [None]
  - HYPERTENSION [None]
  - MITRAL VALVE INCOMPETENCE [None]
  - MYOCARDIAL INFARCTION [None]
  - NAUSEA [None]
  - PALPITATIONS [None]
  - TRICUSPID VALVE INCOMPETENCE [None]
